FAERS Safety Report 10205920 (Version 1)
Quarter: 2014Q2

REPORT INFORMATION
  Report Type: Spontaneous
  Country: CO (occurrence: CO)
  Receive Date: 20140530
  Receipt Date: 20140530
  Transmission Date: 20141212
  Serious: Yes (Hospitalization)
  Sender: FDA-Public Use
  Company Number: CO-009507513-1405COL015131

PATIENT
  Age: 22 Year
  Sex: Female

DRUGS (10)
  1. PEG-INTRON [Suspect]
     Indication: HEPATITIS C
     Dosage: 80MCG DAILY
     Route: 058
  2. REBETOL [Suspect]
     Indication: HEPATITIS C
     Dosage: 1000MG DAILY
     Route: 048
  3. VICTRELIS [Suspect]
     Indication: HEPATITIS C
     Dosage: 2400MG DAILY
     Route: 048
  4. PREDNISOLONE [Concomitant]
     Indication: SYSTEMIC LUPUS ERYTHEMATOSUS
     Dosage: 10MG DAILY
     Route: 048
  5. CHLOROQUINE [Concomitant]
     Indication: SYSTEMIC LUPUS ERYTHEMATOSUS
     Dosage: 150MG DAILY
  6. CALCIUM CARBONATE [Concomitant]
     Indication: SYSTEMIC LUPUS ERYTHEMATOSUS
     Dosage: 150MG DAILY
  7. AZATHIOPRINE [Concomitant]
     Indication: SYSTEMIC LUPUS ERYTHEMATOSUS
     Dosage: 50MG DAILY
  8. ENALAPRIL MALEATE [Concomitant]
     Indication: SYSTEMIC LUPUS ERYTHEMATOSUS
     Dosage: 50MG DAILY
     Route: 048
  9. OMEPRAZOLE [Concomitant]
     Indication: SYSTEMIC LUPUS ERYTHEMATOSUS
     Dosage: 20MG DAILY
  10. LEVOTHYROXINE SODIUM [Concomitant]
     Indication: SYSTEMIC LUPUS ERYTHEMATOSUS
     Dosage: 50MCG DAILY

REACTIONS (2)
  - Appendicitis [Unknown]
  - Appendicectomy [Unknown]
